FAERS Safety Report 23709464 (Version 1)
Quarter: 2024Q2

REPORT INFORMATION
  Report Type: Spontaneous
  Country: US (occurrence: US)
  Receive Date: 20240404
  Receipt Date: 20240404
  Transmission Date: 20240716
  Serious: Yes (Other)
  Sender: FDA-Public Use
  Company Number: US-BAUSCHBL-2024BNL003976

PATIENT
  Age: 64 Year
  Sex: Male

DRUGS (1)
  1. LATANOPROSTENE BUNOD [Suspect]
     Active Substance: LATANOPROSTENE BUNOD
     Indication: Open angle glaucoma
     Dosage: ONE DROP A DAY IN BOTH EYES
     Route: 047

REACTIONS (1)
  - Macular hole [Recovered/Resolved]
